FAERS Safety Report 18983533 (Version 2)
Quarter: 2022Q4

REPORT INFORMATION
  Report Type: Spontaneous
  Country: DE (occurrence: DE)
  Receive Date: 20210309
  Receipt Date: 20221022
  Transmission Date: 20230113
  Serious: Yes (Hospitalization, Other)
  Sender: FDA-Public Use
  Company Number: DE-ADRED-06199-01

PATIENT
  Age: 83 Year
  Sex: Male

DRUGS (2)
  1. BISOPROLOL [Suspect]
     Active Substance: BISOPROLOL
     Indication: Product used for unknown indication
     Dosage: 2.5 MILLIGRAM (1-0-0-0)
     Route: 065
  2. PHENPROCOUMON [Concomitant]
     Active Substance: PHENPROCOUMON
     Indication: Product used for unknown indication
     Dosage: UNK (BY VALUE)
     Route: 065

REACTIONS (8)
  - Depressed level of consciousness [Unknown]
  - Confusional state [Unknown]
  - Fall [Unknown]
  - Disorientation [Unknown]
  - General physical health deterioration [Unknown]
  - Hypotension [Unknown]
  - International normalised ratio abnormal [Unknown]
  - Product monitoring error [Unknown]
